FAERS Safety Report 8406948-5 (Version None)
Quarter: 2012Q2

REPORT INFORMATION
  Report Type: 
  Country: None (occurrence: None)
  Receive Date: 20120529
  Receipt Date: 20050304
  Transmission Date: 20120825
  Serious: Yes (Other)
  Sender: FDA-Public Use
  Company Number: 02100-JPN-05-0109

PATIENT
  Age: 81 Year
  Sex: Male

DRUGS (1)
  1. PLETAL [Suspect]
     Dosage: 100 MG, BID, ORAL
     Route: 048
     Dates: start: 20041004, end: 20050224

REACTIONS (2)
  - ARTERIAL STENOSIS [None]
  - WHITE BLOOD CELL COUNT DECREASED [None]
